FAERS Safety Report 15431602 (Version 1)
Quarter: 2018Q3

REPORT INFORMATION
  Report Type: Spontaneous
  Country: FR (occurrence: FR)
  Receive Date: 20180926
  Receipt Date: 20180926
  Transmission Date: 20181010
  Serious: Yes (Hospitalization, Other)
  Sender: FDA-Public Use
  Company Number: FR-SA-2018SA263982

PATIENT
  Age: 70 Year
  Sex: Male

DRUGS (1)
  1. BCG FOR IMMUNOTHERAPY [Suspect]
     Active Substance: BACILLUS CALMETTE-GUERIN ANTIGEN, UNSPECIFIED SUBSTRAIN
     Indication: BLADDER CANCER
     Route: 043

REACTIONS (12)
  - Bone marrow granuloma [Unknown]
  - Asthenia [Unknown]
  - Hyperhidrosis [Unknown]
  - Aortic aneurysm [Unknown]
  - Chills [Unknown]
  - Weight decreased [Unknown]
  - Granulomatous liver disease [Unknown]
  - Aneurysm ruptured [Unknown]
  - Infective aneurysm [Unknown]
  - Mycobacterium tuberculosis complex test positive [Unknown]
  - Haematuria [Unknown]
  - Dizziness [Unknown]
